FAERS Safety Report 7711586-3 (Version None)
Quarter: 2011Q3

REPORT INFORMATION
  Report Type: 
  Country: None (occurrence: None)
  Receive Date: 20110826
  Receipt Date: 20110510
  Transmission Date: 20111222
  Serious: No
  Sender: FDA-Public Use
  Company Number: US-BRISTOL-MYERS SQUIBB COMPANY-15687742

PATIENT
  Age: 65 Year
  Sex: Female
  Weight: 98 kg

DRUGS (9)
  1. ALLOPURINOL [Concomitant]
  2. ONGLYZA [Suspect]
     Indication: TYPE 2 DIABETES MELLITUS
     Dosage: STARTED A YEAR AGO
     Route: 048
     Dates: start: 20100501
  3. ZETIA [Concomitant]
  4. DOXASIN [Concomitant]
  5. VITAMIN TAB [Concomitant]
  6. METFORMIN HCL [Concomitant]
  7. GLIPIZIDE [Concomitant]
  8. TOPROL-XL [Concomitant]
  9. HYZAAR [Concomitant]

REACTIONS (4)
  - HEART RATE INCREASED [None]
  - ASTHENIA [None]
  - HEADACHE [None]
  - DIZZINESS [None]
